FAERS Safety Report 5692453-6 (Version None)
Quarter: 2008Q1

REPORT INFORMATION
  Report Type: 
  Country: None (occurrence: None)
  Receive Date: 20080331
  Receipt Date: 20080312
  Transmission Date: 20080703
  Serious: Yes (Life-Threatening)
  Sender: FDA-Public Use
  Company Number: ENC200800047

PATIENT
  Age: 65 Year
  Sex: Male

DRUGS (2)
  1. ARGATROBAN [Suspect]
     Indication: HEPARIN-INDUCED THROMBOCYTOPENIA
     Dosage: 240 MG, INTRAVENOUS; 12 MG, INTRAVENOUS
     Route: 042
     Dates: start: 20071121, end: 20071101
  2. ARGATROBAN [Suspect]
     Indication: HEPARIN-INDUCED THROMBOCYTOPENIA
     Dosage: 240 MG, INTRAVENOUS; 12 MG, INTRAVENOUS
     Route: 042
     Dates: start: 20071101, end: 20071128

REACTIONS (1)
  - AGRANULOCYTOSIS [None]
